FAERS Safety Report 5066942-1 (Version None)
Quarter: 2006Q3

REPORT INFORMATION
  Report Type: 
  Country: None (occurrence: None)
  Receive Date: 20060726
  Receipt Date: 20060721
  Transmission Date: 20061208
  Serious: Yes (Other)
  Sender: FDA-Public Use
  Company Number: 200611319BCC

PATIENT
  Age: 22 Year
  Sex: Female
  Weight: 40.8237 kg

DRUGS (1)
  1. ALEVE [Suspect]
     Indication: DYSMENORRHOEA
     Dosage: 440 MG, ORAL
     Route: 048
     Dates: start: 20060325

REACTIONS (3)
  - FLUID INTAKE REDUCED [None]
  - GASTROENTERITIS VIRAL [None]
  - LOSS OF CONSCIOUSNESS [None]
